FAERS Safety Report 4383717-7 (Version None)
Quarter: 2004Q2

REPORT INFORMATION
  Report Type: 
  Country: None (occurrence: None)
  Receive Date: 20040608
  Receipt Date: 20031117
  Transmission Date: 20050107
  Serious: Yes (Other)
  Sender: FDA-Public Use
  Company Number: 200314318BCC

PATIENT
  Age: 55 Year
  Sex: Female
  Weight: 62.5964 kg

DRUGS (2)
  1. ALEVE [Suspect]
     Indication: ARTHROPATHY
     Dosage: 220 MG, ONCE, ORAL
     Route: 048
     Dates: start: 20031115
  2. TYLENOL [Concomitant]

REACTIONS (8)
  - ANAPHYLACTIC REACTION [None]
  - EYE REDNESS [None]
  - OROPHARYNGEAL SWELLING [None]
  - SWELLING [None]
  - SWELLING FACE [None]
  - SWOLLEN TONGUE [None]
  - URTICARIA [None]
  - WHEEZING [None]
